FAERS Safety Report 9322307 (Version 1)
Quarter: 2013Q2

REPORT INFORMATION
  Report Type: Spontaneous
  Country: GB (occurrence: None)
  Receive Date: 20130529
  Receipt Date: 20130529
  Transmission Date: 20140414
  Serious: Yes (Life-Threatening, Hospitalization)
  Sender: FDA-Public Use
  Company Number: KAD201305-000607

PATIENT
  Age: 54 Year
  Sex: Female

DRUGS (3)
  1. RIBAVIRIN (RIBAVIRIN) [Suspect]
     Indication: HEPATITIS C
     Dosage: ONCE DAILY, TABLET
     Route: 048
     Dates: start: 20120706
  2. PEGINTERFERON ALFA 2-B [Suspect]
     Indication: HEPATITIS C
     Dosage: ONCE PER WEEK, INJECTION
     Route: 058
     Dates: start: 20120706
  3. INCIVO (TELAPREVIR) [Suspect]
     Indication: HEPATITIS C
     Dosage: ONCE EVERY 8 HOURS, TABLET
     Dates: start: 20120706, end: 20120929

REACTIONS (5)
  - Anaemia [None]
  - Diarrhoea [None]
  - Nausea [None]
  - Oedema peripheral [None]
  - Stevens-Johnson syndrome [None]
